FAERS Safety Report 9624348 (Version 1)
Quarter: 2013Q4

REPORT INFORMATION
  Report Type: Spontaneous
  Country: BR (occurrence: BR)
  Receive Date: 20131015
  Receipt Date: 20131015
  Transmission Date: 20140711
  Serious: Yes (Other)
  Sender: FDA-Public Use
  Company Number: BR-GLAXOSMITHKLINE-A1045413A

PATIENT
  Sex: Female
  Weight: 72 kg

DRUGS (3)
  1. TYKERB [Suspect]
     Indication: BREAST CANCER METASTATIC
     Dosage: 250MG UNKNOWN
     Route: 048
     Dates: start: 2010
  2. XELODA [Suspect]
     Indication: BREAST CANCER METASTATIC
     Route: 065
     Dates: start: 2010
  3. OXCARBAZEPINE [Suspect]
     Indication: PRODUCT USED FOR UNKNOWN INDICATION
     Route: 065

REACTIONS (3)
  - Convulsion [Unknown]
  - Neoplasm recurrence [Unknown]
  - Metastases to liver [Unknown]
